FAERS Safety Report 9226249 (Version 2)
Quarter: 2013Q2

REPORT INFORMATION
  Report Type: Spontaneous
  Country: US (occurrence: US)
  Receive Date: 20130411
  Receipt Date: 20130610
  Transmission Date: 20140414
  Serious: Yes (Other)
  Sender: FDA-Public Use
  Company Number: US-PFIZER INC-2013109987

PATIENT
  Age: 62 Year
  Sex: Female
  Weight: 53 kg

DRUGS (7)
  1. PREMARIN [Suspect]
     Indication: MENOPAUSAL SYMPTOMS
     Dosage: UNK
     Route: 067
     Dates: start: 2002, end: 2012
  2. PREMARIN [Suspect]
     Indication: ATROPHIC VULVOVAGINITIS
     Dosage: UNK
     Route: 067
     Dates: end: 201207
  3. PREMARIN [Suspect]
     Dosage: UNK
     Route: 067
     Dates: start: 201301
  4. PREMARIN [Suspect]
     Dosage: UNK
     Route: 067
     Dates: start: 201303
  5. DIOVANE [Concomitant]
     Dosage: UNK
  6. BABY ASPIRIN [Concomitant]
     Dosage: UNK
  7. VITAMIN B12 [Concomitant]
     Dosage: UNK

REACTIONS (6)
  - Malignant melanoma [Unknown]
  - Drug hypersensitivity [Unknown]
  - Application site pain [Unknown]
  - Application site pruritus [Unknown]
  - Application site swelling [Unknown]
  - Application site vesicles [Unknown]
